FAERS Safety Report 5032755-X (Version None)
Quarter: 2006Q2

REPORT INFORMATION
  Report Type: 
  Country: None (occurrence: None)
  Receive Date: 20060515
  Receipt Date: 20060203
  Transmission Date: 20061013
  Serious: No
  Sender: FDA-Public Use
  Company Number: S06-USA-00452-01

PATIENT
  Age: 52 Year
  Sex: Female

DRUGS (2)
  1. NAMENDA [Suspect]
     Indication: NERVOUS SYSTEM DISORDER
     Dosage: 5 MG QD PO
     Route: 047
     Dates: start: 20060129
  2. MULTIPLE MEDICATIONS (NOS) [Concomitant]

REACTIONS (1)
  - MOOD SWINGS [None]
